FAERS Safety Report 4379602-7 (Version None)
Quarter: 2004Q2

REPORT INFORMATION
  Report Type: 
  Country: None (occurrence: None)
  Receive Date: 20040414
  Receipt Date: 20040218
  Transmission Date: 20050107
  Serious: No
  Sender: FDA-Public Use
  Company Number: 2004S1000030

PATIENT
  Age: 27 Year
  Sex: Female

DRUGS (10)
  1. CUBICIN [Suspect]
     Indication: GLYCOPEPTIDE ANTIBIOTIC RESISTANT ENTEROCOCCAL INFECTION
     Dosage: 6 MG/KG; QOD; IV
     Route: 042
     Dates: start: 20040216
  2. LORAZEPAM [Concomitant]
  3. NEORAL [Concomitant]
  4. CASPOFUNGIN [Concomitant]
  5. PANTOPRAZOLE [Concomitant]
  6. PREDNISONE [Concomitant]
  7. URSODIOL [Concomitant]
  8. SYNERGIN [Concomitant]
  9. REGLAN [Concomitant]
  10. CIPROFLOXACIN [Concomitant]

REACTIONS (1)
  - PYREXIA [None]
